FAERS Safety Report 7089560-2 (Version None)
Quarter: 2010Q4

REPORT INFORMATION
  Report Type: 
  Country: None (occurrence: None)
  Receive Date: 20101108
  Receipt Date: 20101102
  Transmission Date: 20110411
  Serious: Yes (Other)
  Sender: FDA-Public Use
  Company Number: JP-PFIZER INC-2010131321

PATIENT
  Age: 80 Year
  Sex: Female

DRUGS (9)
  1. LYRICA [Suspect]
     Indication: PAIN
     Dosage: 75 MG/DAY
     Route: 048
     Dates: start: 20101004, end: 20101005
  2. DEPAS [Concomitant]
     Dosage: 0.5 MG, UNK
     Route: 048
     Dates: start: 20101004, end: 20101005
  3. LOXOPROFEN SODIUM [Concomitant]
  4. SELBEX [Concomitant]
  5. OLMETEC [Concomitant]
  6. CYANOCOBALAMIN [Concomitant]
  7. NEUROTROPIN [Concomitant]
  8. 8-HOUR BAYER [Concomitant]
  9. AMLODIPINE [Concomitant]
     Dosage: UNK

REACTIONS (3)
  - DIZZINESS [None]
  - FALL [None]
  - RADIUS FRACTURE [None]
